FAERS Safety Report 9771348 (Version 1)
Quarter: 2013Q4

REPORT INFORMATION
  Report Type: Spontaneous
  Country: BR (occurrence: BR)
  Receive Date: 20131218
  Receipt Date: 20131218
  Transmission Date: 20140711
  Serious: Yes (Hospitalization, Other)
  Sender: FDA-Public Use
  Company Number: PHHY2013BR148462

PATIENT
  Age: 61 Year
  Sex: Female

DRUGS (3)
  1. DIOVAN AMLO FIX [Suspect]
     Indication: HYPERTENSION
     Dosage: 2 DF, (320/10 MG), WHEN BLOOD PRESSURE WAS HIGH
     Route: 048
     Dates: end: 20131210
  2. DIOVAN AMLO FIX [Suspect]
     Dosage: 1 DF (320/10 MG), WHEN BLOOD PRESSURE WAS NOT HIGH
     Route: 048
     Dates: end: 20131210
  3. CAPTOPRIL [Concomitant]
     Dosage: UNK UKN, UNK
     Route: 060
     Dates: start: 20131210

REACTIONS (6)
  - Urinary tract infection [Recovered/Resolved]
  - Nervousness [Unknown]
  - Neck pain [Not Recovered/Not Resolved]
  - Headache [Not Recovered/Not Resolved]
  - Hypertension [Unknown]
  - Expired drug administered [Unknown]
